FAERS Safety Report 11678926 (Version 2)
Quarter: 2015Q4

REPORT INFORMATION
  Report Type: Spontaneous
  Country: US (occurrence: US)
  Receive Date: 20151027
  Receipt Date: 20151104
  Transmission Date: 20160304
  Serious: No
  Sender: FDA-Public Use
  Company Number: US-ELI_LILLY_AND_COMPANY-US201007006756

PATIENT
  Age: 73 Year
  Sex: Female

DRUGS (5)
  1. FORTEO [Suspect]
     Active Substance: TERIPARATIDE
     Dosage: 20 UG, DAILY (1/D)
     Route: 065
  2. CALCIUM [Concomitant]
     Active Substance: CALCIUM
  3. FORTEO [Suspect]
     Active Substance: TERIPARATIDE
     Indication: OSTEOPOROSIS
     Dosage: 20 UG, DAILY (1/D)
     Route: 065
     Dates: start: 20100713
  4. FORTEO [Suspect]
     Active Substance: TERIPARATIDE
     Dosage: 20 UG, DAILY (1/D)
  5. FORTEO [Suspect]
     Active Substance: TERIPARATIDE
     Dosage: 20 UG, DAILY (1/D)

REACTIONS (16)
  - Abdominal discomfort [Not Recovered/Not Resolved]
  - Somnolence [Unknown]
  - Muscle spasms [Recovered/Resolved]
  - Glucose tolerance impaired [Unknown]
  - Abdominal pain upper [Not Recovered/Not Resolved]
  - Weight decreased [Unknown]
  - Asthenia [Unknown]
  - Arthralgia [Recovered/Resolved]
  - Pain in extremity [Unknown]
  - Dysgeusia [Not Recovered/Not Resolved]
  - Blood calcium increased [Unknown]
  - Feeling abnormal [Unknown]
  - Dizziness [Recovering/Resolving]
  - Malaise [Recovering/Resolving]
  - Movement disorder [Unknown]
  - Insomnia [Unknown]

NARRATIVE: CASE EVENT DATE: 20100817
